FAERS Safety Report 4927115-3 (Version None)
Quarter: 2006Q1

REPORT INFORMATION
  Report Type: 
  Country: None (occurrence: None)
  Receive Date: 20060228
  Receipt Date: 20051215
  Transmission Date: 20060701
  Serious: Yes (Hospitalization)
  Sender: FDA-Public Use
  Company Number: PHHO2005US19689

PATIENT
  Sex: Female
  Weight: 37.6 kg

DRUGS (9)
  1. STI571 [Suspect]
     Indication: ACUTE LYMPHOCYTIC LEUKAEMIA
     Dosage: 300 MG/M2, QD
     Route: 048
     Dates: start: 20050826, end: 20050915
  2. CYCLOSPORINE [Suspect]
     Indication: BONE MARROW TRANSPLANT
     Dosage: 50 MG, BID
  3. CYTOXAN [Suspect]
     Dosage: 1800 MG/M2, QD
  4. ETANERCEPT [Suspect]
  5. ETOPOSIDE [Suspect]
  6. METHYLPREDNISOLONE [Suspect]
  7. PULMICORT [Concomitant]
  8. RADIATION THERAPY [Suspect]
     Indication: ACUTE LYMPHOCYTIC LEUKAEMIA
  9. PLAQUENIL [Suspect]

REACTIONS (12)
  - CYTOMEGALOVIRUS TEST POSITIVE [None]
  - HUMAN HERPES VIRUS 6 SEROLOGY POSITIVE [None]
  - HYPOXIA [None]
  - IMMUNODEFICIENCY [None]
  - LUNG INFILTRATION [None]
  - NEUTROPENIA [None]
  - OXYGEN CONSUMPTION INCREASED [None]
  - RADIATION PNEUMONITIS [None]
  - RENAL FAILURE [None]
  - RESPIRATORY DEPRESSION [None]
  - RESPIRATORY DISTRESS [None]
  - VENOOCCLUSIVE LIVER DISEASE [None]
